FAERS Safety Report 4291430-X (Version None)
Quarter: 2004Q1

REPORT INFORMATION
  Report Type: 
  Country: None (occurrence: None)
  Receive Date: 20040210
  Receipt Date: 20040210
  Transmission Date: 20041129
  Serious: Yes (Hospitalization)
  Sender: FDA-Public Use
  Company Number: None

PATIENT
  Age: 78 Year
  Sex: Female

DRUGS (8)
  1. WARFARIN SODIUM [Suspect]
     Indication: DEEP VEIN THROMBOSIS
     Dosage: 5 MG DAILY ORAL
     Route: 048
     Dates: start: 20031117, end: 20031118
  2. GEMCITABINE [Suspect]
     Indication: ADENOCARCINOMA
     Dosage: 1690 MG ONCE INTRAVENOUS
     Route: 042
     Dates: start: 20031119, end: 20031119
  3. WARFARIN SODIUM [Concomitant]
  4. LISINOPRIL [Concomitant]
  5. CALCIUM [Concomitant]
  6. MULTI-VITAMIN [Concomitant]
  7. PANTOPRAZOLE [Concomitant]
  8. HEPARIN [Concomitant]

REACTIONS (2)
  - DRUG INTERACTION [None]
  - INTERNATIONAL NORMALISED RATIO INCREASED [None]
